FAERS Safety Report 8042679-1 (Version None)
Quarter: 2012Q1

REPORT INFORMATION
  Report Type: 
  Country: None (occurrence: None)
  Receive Date: 20120112
  Receipt Date: 20120109
  Transmission Date: 20120608
  Serious: Yes (Hospitalization, Other)
  Sender: FDA-Public Use
  Company Number: US-MERCK-0807USA03270

PATIENT
  Age: 53 Year
  Sex: Female
  Weight: 79 kg

DRUGS (9)
  1. CALCIUM (UNSPECIFIED) [Concomitant]
     Route: 065
     Dates: start: 19860101, end: 20100101
  2. LEVOXYL [Concomitant]
     Route: 065
  3. CADUET [Concomitant]
     Route: 065
  4. FOSAMAX PLUS D [Suspect]
     Indication: OSTEOPOROSIS
     Route: 048
     Dates: start: 20060125, end: 20080701
  5. NAPROSYN [Concomitant]
     Route: 065
  6. FOSAMAX [Suspect]
     Route: 048
     Dates: start: 20011228, end: 20060125
  7. SYNTHROID [Concomitant]
     Indication: HYPOTHYROIDISM
     Route: 048
     Dates: start: 19950301
  8. FOSAMAX [Suspect]
     Indication: OSTEOPOROSIS
     Route: 048
     Dates: start: 19950101, end: 20011228
  9. OMEGA-3 MARINE TRIGLYCERIDES [Concomitant]
     Route: 065

REACTIONS (36)
  - CONTUSION [None]
  - PARATHYROID TUMOUR BENIGN [None]
  - LIVER FUNCTION TEST ABNORMAL [None]
  - WEIGHT INCREASED [None]
  - TIBIA FRACTURE [None]
  - FIBULA FRACTURE [None]
  - LOW TURNOVER OSTEOPATHY [None]
  - RENAL DISORDER [None]
  - OSTEOPOROSIS [None]
  - ROAD TRAFFIC ACCIDENT [None]
  - HUMERUS FRACTURE [None]
  - BLOOD PRESSURE INCREASED [None]
  - IMPAIRED HEALING [None]
  - N-TELOPEPTIDE URINE [None]
  - GOITRE [None]
  - LEFT VENTRICULAR HYPERTROPHY [None]
  - HYPERPARATHYROIDISM [None]
  - HYPERLIPIDAEMIA [None]
  - HYPERCALCIURIA [None]
  - FEMUR FRACTURE [None]
  - UPPER LIMB FRACTURE [None]
  - LACERATION [None]
  - BLOOD PARATHYROID HORMONE INCREASED [None]
  - PAIN [None]
  - MASS [None]
  - DIABETES MELLITUS [None]
  - FRACTURE DELAYED UNION [None]
  - ABDOMINAL INJURY [None]
  - RADIUS FRACTURE [None]
  - RIB FRACTURE [None]
  - FALL [None]
  - JOINT INJURY [None]
  - CARDIAC MURMUR [None]
  - NAUSEA [None]
  - OSTEOPENIA [None]
  - CERVICAL SPINAL STENOSIS [None]
